FAERS Safety Report 7082754-1 (Version None)
Quarter: 2010Q4

REPORT INFORMATION
  Report Type: 
  Country: None (occurrence: None)
  Receive Date: 20101104
  Receipt Date: 20101028
  Transmission Date: 20110411
  Serious: Yes (Other)
  Sender: FDA-Public Use
  Company Number: JP-BRISTOL-MYERS SQUIBB COMPANY-15361249

PATIENT
  Age: 64 Year
  Sex: Male

DRUGS (4)
  1. VEPESID [Suspect]
     Indication: SMALL CELL LUNG CANCER STAGE UNSPECIFIED
     Route: 048
  2. RANDA [Suspect]
     Indication: SMALL CELL LUNG CANCER STAGE UNSPECIFIED
  3. IRINOTECAN HCL [Suspect]
     Indication: SMALL CELL LUNG CANCER STAGE UNSPECIFIED
  4. RADIOTHERAPY [Suspect]
     Indication: SMALL CELL LUNG CANCER STAGE UNSPECIFIED
     Dosage: 1DF=50GY

REACTIONS (1)
  - LEIOMYOSARCOMA [None]
